FAERS Safety Report 7540544-7 (Version None)
Quarter: 2011Q2

REPORT INFORMATION
  Report Type: 
  Country: None (occurrence: None)
  Receive Date: 20110610
  Receipt Date: 20110531
  Transmission Date: 20111010
  Serious: Yes (Other)
  Sender: FDA-Public Use
  Company Number: B0717018A

PATIENT
  Sex: Female

DRUGS (6)
  1. LEXOMIL [Concomitant]
     Route: 048
  2. XOLAAM [Concomitant]
     Dosage: 3UNIT PER DAY
     Route: 048
  3. SPASFON [Concomitant]
     Route: 048
  4. STABLON [Concomitant]
     Dosage: 2UNIT PER DAY
     Route: 048
     Dates: start: 20101101
  5. LAPATINIB [Suspect]
     Indication: BREAST CANCER METASTATIC
     Route: 048
     Dates: start: 20100701, end: 20110225
  6. INDAPAMIDE [Concomitant]
     Route: 048

REACTIONS (6)
  - DRY EYE [None]
  - MYALGIA [None]
  - PARONYCHIA [None]
  - VITREOUS DETACHMENT [None]
  - TINNITUS [None]
  - HEADACHE [None]
